FAERS Safety Report 10207531 (Version 1)
Quarter: 2014Q2

REPORT INFORMATION
  Report Type: Spontaneous
  Country: US (occurrence: US)
  Receive Date: 20140530
  Receipt Date: 20140530
  Transmission Date: 20141212
  Serious: No
  Sender: FDA-Public Use
  Company Number: US-GLAXOSMITHKLINE-A1048250A

PATIENT
  Age: 76 Year
  Sex: Male

DRUGS (7)
  1. VENTOLIN [Suspect]
     Indication: DYSPNOEA
     Dosage: 3PUFF FOUR TIMES PER DAY
     Route: 055
     Dates: start: 2012
  2. ANTIBIOTIC [Concomitant]
  3. ASPIRIN [Concomitant]
  4. SPIRIVA [Concomitant]
  5. ADVAIR DISKUS [Concomitant]
  6. NEBULIZER TREATMENT [Concomitant]
  7. PRO-AIR [Concomitant]

REACTIONS (1)
  - Drug administration error [Not Recovered/Not Resolved]
